FAERS Safety Report 6503933-5 (Version None)
Quarter: 2009Q4

REPORT INFORMATION
  Report Type: 
  Country: None (occurrence: None)
  Receive Date: 20091217
  Receipt Date: 20091210
  Transmission Date: 20100525
  Serious: Yes (Hospitalization)
  Sender: FDA-Public Use
  Company Number: US-MERCK-0912USA01620

PATIENT
  Age: 56 Year
  Sex: Female

DRUGS (4)
  1. JANUVIA [Suspect]
     Indication: TYPE 2 DIABETES MELLITUS
     Route: 048
     Dates: start: 20091101, end: 20091211
  2. METFORMIN [Concomitant]
     Route: 065
  3. ZOCOR [Concomitant]
     Route: 065
  4. METOPROLOL SUCCINATE [Concomitant]
     Route: 065

REACTIONS (5)
  - ARTHRALGIA [None]
  - DYSPNOEA [None]
  - MYALGIA [None]
  - OEDEMA DUE TO CARDIAC DISEASE [None]
  - PULMONARY OEDEMA [None]
